FAERS Safety Report 7361540-9 (Version None)
Quarter: 2011Q1

REPORT INFORMATION
  Report Type: 
  Country: None (occurrence: None)
  Receive Date: 20110318
  Receipt Date: 20110315
  Transmission Date: 20110831
  Serious: Yes (Other)
  Sender: FDA-Public Use
  Company Number: JP-PFIZER INC-2011058387

PATIENT
  Age: 62 Year
  Sex: Female

DRUGS (2)
  1. PAXIL [Concomitant]
     Dosage: UNK
  2. SOLANAX [Suspect]
     Dosage: 0.4 MG/DAY
     Route: 048

REACTIONS (2)
  - MUSCULAR WEAKNESS [None]
  - ARTHROPATHY [None]
